FAERS Safety Report 6428734 (Version 21)
Quarter: 2014Q1

REPORT INFORMATION
  Report Type: Spontaneous
  Country: US (occurrence: US)
  Receive Date: 20070927
  Receipt Date: 20140226
  Transmission Date: 20141002
  Serious: Yes (Hospitalization, Disabling, Other)
  Sender: FDA-Public Use
  Company Number: US-ROCHE-509519

PATIENT
  Age: 51 Year
  Sex: Female
  Weight: 78 kg

DRUGS (3)
  1. ACCUTANE [Suspect]
     Indication: ACNE
     Route: 065
     Dates: start: 19990307, end: 19990413
  2. DOXYCYCLINE [Concomitant]
     Route: 065
  3. SULFAMETHOXAZOLE/TRIMETHOPRIM [Concomitant]
     Dosage: REPORTED AS TRIMETHOPRIM/SULFAMETHOXAZOLE.
     Route: 065

REACTIONS (45)
  - Crohn^s disease [Recovering/Resolving]
  - Inflammatory bowel disease [Unknown]
  - Colitis ulcerative [Unknown]
  - Necrotising colitis [Unknown]
  - Influenza like illness [Unknown]
  - Irritable bowel syndrome [Unknown]
  - Cholelithiasis [Recovered/Resolved]
  - Cholecystitis [Recovered/Resolved]
  - Weight decreased [Unknown]
  - Decreased appetite [Recovering/Resolving]
  - Urinary tract infection [Recovered/Resolved]
  - Cardiac failure [Recovered/Resolved]
  - Haemorrhoidal haemorrhage [Unknown]
  - Major depression [Not Recovered/Not Resolved]
  - Suicide attempt [Unknown]
  - Polyarthritis [Unknown]
  - Anaemia [Unknown]
  - Sepsis [Unknown]
  - Polyarthritis [Unknown]
  - Crohn^s disease [Unknown]
  - Fibromyalgia [Unknown]
  - Enteritis [Unknown]
  - Anxiety [Not Recovered/Not Resolved]
  - Depression [Not Recovered/Not Resolved]
  - Morbid thoughts [Unknown]
  - Suicidal ideation [Unknown]
  - Rheumatoid arthritis [Unknown]
  - Gastrointestinal haemorrhage [Unknown]
  - Osteopenia [Unknown]
  - Pseudopolyp [Unknown]
  - Polyp [Unknown]
  - Large intestine perforation [Recovered/Resolved]
  - Carpal tunnel syndrome [Recovered/Resolved]
  - Colitis [Recovering/Resolving]
  - Paranoia [Not Recovered/Not Resolved]
  - Hepatic steatosis [Unknown]
  - Arthralgia [Unknown]
  - Abdominal pain upper [Unknown]
  - Haemorrhoids [Unknown]
  - Asthenia [Recovering/Resolving]
  - Hypersensitivity [Unknown]
  - Pyrexia [Unknown]
  - Rectal prolapse [Unknown]
  - Chronic fatigue syndrome [Unknown]
  - Gastrointestinal disorder [Unknown]
